FAERS Safety Report 10524468 (Version 1)
Quarter: 2014Q4

REPORT INFORMATION
  Report Type: Report from Study
  Country: DE (occurrence: DE)
  Receive Date: 20141017
  Receipt Date: 20141017
  Transmission Date: 20150528
  Serious: Yes (Congenital Anomaly, Other)
  Sender: FDA-Public Use
  Company Number: DE-ROXANE LABORATORIES, INC.-2014-BI-48729GD

PATIENT

DRUGS (14)
  1. SALBUTAMOL [Suspect]
     Active Substance: ALBUTEROL
     Indication: EXPOSURE DURING PREGNANCY
     Route: 064
  2. VITAMIN K [Suspect]
     Active Substance: PHYTONADIONE
     Indication: EXPOSURE DURING PREGNANCY
     Route: 064
  3. IVACAFTOR [Suspect]
     Active Substance: IVACAFTOR
     Indication: EXPOSURE DURING PREGNANCY
     Route: 064
  4. CIPROFLOXACIN. [Suspect]
     Active Substance: CIPROFLOXACIN
     Indication: EXPOSURE DURING PREGNANCY
     Route: 064
  5. PANCREATIN [Suspect]
     Active Substance: PANCRELIPASE
     Indication: EXPOSURE DURING PREGNANCY
     Route: 064
  6. LEVOFLOXACIN. [Suspect]
     Active Substance: LEVOFLOXACIN
     Indication: EXPOSURE DURING PREGNANCY
     Route: 064
  7. CEFTAZIDIME. [Suspect]
     Active Substance: CEFTAZIDIME
     Indication: EXPOSURE DURING PREGNANCY
     Route: 064
  8. AZITHROMYCIN [Suspect]
     Active Substance: AZITHROMYCIN ANHYDROUS
     Indication: EXPOSURE DURING PREGNANCY
     Route: 064
  9. INSULIN [Suspect]
     Active Substance: INSULIN NOS
     Indication: EXPOSURE DURING PREGNANCY
     Route: 064
  10. FENOTEROL [Suspect]
     Active Substance: FENOTEROL
     Indication: EXPOSURE DURING PREGNANCY
     Route: 064
  11. COLISTIN [Suspect]
     Active Substance: COLISTIN
     Indication: EXPOSURE DURING PREGNANCY
     Route: 064
  12. AZTREONAM. [Suspect]
     Active Substance: AZTREONAM
     Indication: EXPOSURE DURING PREGNANCY
     Route: 064
  13. MEROPENEM. [Suspect]
     Active Substance: MEROPENEM
     Indication: EXPOSURE DURING PREGNANCY
     Route: 064
  14. IPRATROPIUM BROMIDE. [Suspect]
     Active Substance: IPRATROPIUM BROMIDE
     Indication: EXPOSURE DURING PREGNANCY
     Route: 064

REACTIONS (2)
  - Premature baby [Unknown]
  - Atrial septal defect [Unknown]
